FAERS Safety Report 16802078 (Version 1)
Quarter: 2019Q3

REPORT INFORMATION
  Report Type: Spontaneous
  Country: US (occurrence: US)
  Receive Date: 20190912
  Receipt Date: 20190912
  Transmission Date: 20191005
  Serious: No
  Sender: FDA-Public Use
  Company Number: US-KOWA-19US000527

PATIENT

DRUGS (3)
  1. LIVALO [Suspect]
     Active Substance: PITAVASTATIN CALCIUM
     Indication: BLOOD CHOLESTEROL INCREASED
     Dosage: 4 MG, QD
     Dates: start: 2015, end: 2016
  2. MULTIVITAMINS                      /00116001/ [Concomitant]
     Active Substance: VITAMINS
     Indication: PRODUCT USED FOR UNKNOWN INDICATION
     Dosage: UNK
  3. LIVALO [Suspect]
     Active Substance: PITAVASTATIN CALCIUM
     Dosage: 2 MG
     Dates: start: 2016

REACTIONS (8)
  - Rash generalised [Recovered/Resolved]
  - Rash generalised [Not Recovered/Not Resolved]
  - Dry skin [Not Recovered/Not Resolved]
  - Feeling abnormal [Recovered/Resolved]
  - Wrong technique in product usage process [Unknown]
  - Rash pruritic [Recovered/Resolved]
  - Rash pruritic [Not Recovered/Not Resolved]
  - Skin fissures [Not Recovered/Not Resolved]

NARRATIVE: CASE EVENT DATE: 2016
